FAERS Safety Report 12012934 (Version 1)
Quarter: 2016Q1

REPORT INFORMATION
  Report Type: Spontaneous
  Country: NZ (occurrence: NZ)
  Receive Date: 20160205
  Receipt Date: 20160205
  Transmission Date: 20160526
  Serious: Yes (Hospitalization)
  Sender: FDA-Public Use
  Company Number: NZ-PFIZER INC-2016066258

PATIENT
  Age: 60 Year
  Sex: Male

DRUGS (3)
  1. METHOTREXATE [Concomitant]
     Active Substance: METHOTREXATE
     Indication: DIFFUSE LARGE B-CELL LYMPHOMA STAGE I
     Dosage: 12.5 MG, UNK
     Route: 037
  2. LIDOCAINE HCL [Suspect]
     Active Substance: LIDOCAINE HYDROCHLORIDE
     Indication: LOCAL ANAESTHESIA
     Dosage: 8 ML, UNK (SKIN TISSUE WAS INFILTERED USING A 21 GAUGE NEEDLE)
  3. LIDOCAINE HCL [Suspect]
     Active Substance: LIDOCAINE HYDROCHLORIDE
     Dosage: 8 ML, UNK (INFILTERED USING A 21 GAUGE NEEDLE)
     Route: 058

REACTIONS (2)
  - Paraesthesia [Recovered/Resolved]
  - Cauda equina syndrome [Recovered/Resolved]
